FAERS Safety Report 14326350 (Version 4)
Quarter: 2018Q1

REPORT INFORMATION
  Report Type: Report from Study
  Country: CA (occurrence: CA)
  Receive Date: 20171227
  Receipt Date: 20180313
  Transmission Date: 20180509
  Serious: Yes (Hospitalization, Other)
  Sender: FDA-Public Use
  Company Number: CA-BRISTOL-MYERS SQUIBB COMPANY-BMS-2017-117086

PATIENT
  Sex: Female

DRUGS (1)
  1. ABATACEPT [Suspect]
     Active Substance: ABATACEPT
     Indication: RHEUMATOID ARTHRITIS
     Dosage: 750 MG, Q4WK
     Route: 042
     Dates: start: 20100316

REACTIONS (11)
  - Dyspepsia [Unknown]
  - Colon neoplasm [Not Recovered/Not Resolved]
  - Procedural pain [Unknown]
  - Gastrointestinal infection [Unknown]
  - Liver abscess [Recovering/Resolving]
  - Constipation [Unknown]
  - Migraine [Unknown]
  - Arthralgia [Unknown]
  - Head discomfort [Unknown]
  - Depression [Unknown]
  - Functional gastrointestinal disorder [Unknown]
